FAERS Safety Report 8916393 (Version 2)
Quarter: 2012Q4

REPORT INFORMATION
  Report Type: Report from Study
  Country: DE (occurrence: DE)
  Receive Date: 20121120
  Receipt Date: 20121125
  Transmission Date: 20130627
  Serious: Yes (Hospitalization)
  Sender: FDA-Public Use
  Company Number: DE-SANOFI-AVENTIS-2012SA084844

PATIENT
  Age: 75 Year
  Sex: Male
  Weight: 75 kg

DRUGS (3)
  1. MULTAQ [Suspect]
     Indication: PERSISTENT ATRIAL FIBRILLATION
     Route: 048
     Dates: start: 20120810, end: 20121001
  2. METOPROLOL [Concomitant]
     Indication: PERSISTENT ATRIAL FIBRILLATION
  3. DABIGATRAN ETEXILATE [Concomitant]
     Indication: ANTICOAGULANT THERAPY

REACTIONS (2)
  - Interstitial lung disease [Recovered/Resolved]
  - Dyspnoea [Recovered/Resolved]
